FAERS Safety Report 11797989 (Version 1)
Quarter: 2015Q4

REPORT INFORMATION
  Report Type: Spontaneous
  Country: US (occurrence: None)
  Receive Date: 20151202
  Receipt Date: 20151202
  Transmission Date: 20160305
  Serious: No
  Sender: FDA-Public Use
  Company Number: None

PATIENT
  Age: 34 Year
  Sex: Female
  Weight: 79.38 kg

DRUGS (11)
  1. ALPHA CRS [Concomitant]
  2. DELSYM [Suspect]
     Active Substance: DEXTROMETHORPHAN
     Indication: THROAT IRRITATION
     Dates: start: 20151201, end: 20151201
  3. HYDROCO/ACETAMINOP [Concomitant]
  4. DOTERRA [Concomitant]
  5. XEO MEGA [Concomitant]
  6. SUMATRIPTAN SUCCINATE. [Concomitant]
     Active Substance: SUMATRIPTAN SUCCINATE
  7. PHYTOESTROGEN COMPLEX [Concomitant]
  8. DELSYM [Suspect]
     Active Substance: DEXTROMETHORPHAN
     Indication: COUGH
     Dates: start: 20151201, end: 20151201
  9. MICROPLEX MVP [Concomitant]
  10. DOTERRA [Concomitant]
  11. CALCIUM LACTATE [Concomitant]
     Active Substance: CALCIUM LACTATE

REACTIONS (10)
  - Somnolence [None]
  - Nausea [None]
  - Dizziness [None]
  - Vertigo [None]
  - Chills [None]
  - Disorientation [None]
  - Headache [None]
  - Feeling abnormal [None]
  - Abdominal discomfort [None]
  - Initial insomnia [None]

NARRATIVE: CASE EVENT DATE: 20151201
